FAERS Safety Report 15299464 (Version 1)
Quarter: 2018Q3

REPORT INFORMATION
  Report Type: Spontaneous
  Country: US (occurrence: US)
  Receive Date: 20180808
  Receipt Date: 20180808
  Transmission Date: 20181010
  Serious: No
  Sender: FDA-Public Use
  Company Number: None

PATIENT
  Age: 61 Year
  Sex: Female

DRUGS (1)
  1. VERZENIO [Suspect]
     Active Substance: ABEMACICLIB
     Indication: BREAST CANCER FEMALE
     Dosage: 100MG 1 TAB 2X DAY BY MOUTH
     Route: 048
     Dates: start: 20180525, end: 20180803

REACTIONS (2)
  - Diarrhoea [None]
  - Cholelithiasis [None]

NARRATIVE: CASE EVENT DATE: 20180803
